FAERS Safety Report 14947295 (Version 1)
Quarter: 2018Q2

REPORT INFORMATION
  Report Type: Spontaneous
  Country: BR (occurrence: BR)
  Receive Date: 20180529
  Receipt Date: 20180529
  Transmission Date: 20180711
  Serious: Yes (Hospitalization)
  Sender: FDA-Public Use
  Company Number: BR-PFIZER INC-2018096945

PATIENT
  Age: 44 Year
  Sex: Female

DRUGS (3)
  1. DIPIRONA SODICA WYETH [Suspect]
     Active Substance: METAMIZOLE SODIUM
     Indication: FIBROMYALGIA
  2. IBUPROFEN. [Suspect]
     Active Substance: IBUPROFEN
     Indication: FIBROMYALGIA
  3. MELOXICAM. [Suspect]
     Active Substance: MELOXICAM
     Indication: FIBROMYALGIA
     Dosage: 15 MG, DAILY
     Dates: start: 201708, end: 201801

REACTIONS (4)
  - Swelling [Not Recovered/Not Resolved]
  - Abdominal pain upper [Not Recovered/Not Resolved]
  - Gastrointestinal pain [Not Recovered/Not Resolved]
  - Nausea [Recovered/Resolved]
